FAERS Safety Report 6009077-3 (Version None)
Quarter: 2008Q4

REPORT INFORMATION
  Report Type: 
  Country: None (occurrence: None)
  Receive Date: 20081216
  Receipt Date: 20081205
  Transmission Date: 20090506
  Serious: Yes (Other)
  Sender: FDA-Public Use
  Company Number: 2008SP024847

PATIENT
  Age: 29 Year
  Sex: Male

DRUGS (2)
  1. PEG-INTRON [Suspect]
     Indication: HEPATITIS C
     Dosage: SC
     Route: 058
     Dates: start: 20081031
  2. RIBASPHERE [Suspect]
     Indication: HEPATITIS C
     Dates: start: 20081031

REACTIONS (4)
  - DEHYDRATION [None]
  - MYALGIA [None]
  - NAUSEA [None]
  - VOMITING [None]
